FAERS Safety Report 9706889 (Version 1)
Quarter: 2013Q4

REPORT INFORMATION
  Report Type: Spontaneous
  Country: AT (occurrence: AT)
  Receive Date: 20131125
  Receipt Date: 20131125
  Transmission Date: 20140711
  Serious: Yes (Hospitalization, Other)
  Sender: FDA-Public Use
  Company Number: AT-JNJFOC-20131107370

PATIENT
  Age: 33 Year
  Sex: Female

DRUGS (4)
  1. XEPLION [Suspect]
     Indication: SCHIZOPHRENIA, PARANOID TYPE
     Route: 030
     Dates: start: 20130705, end: 20130711
  2. RISPERDAL ORAL [Suspect]
     Indication: SCHIZOPHRENIA, PARANOID TYPE
     Route: 048
     Dates: start: 20130620, end: 20130711
  3. RISPERDAL ORAL [Suspect]
     Indication: SCHIZOPHRENIA, PARANOID TYPE
     Route: 048
     Dates: start: 20130711
  4. AKINETON [Concomitant]
     Indication: SCHIZOPHRENIA, PARANOID TYPE
     Route: 065
     Dates: start: 20130711, end: 20130730

REACTIONS (3)
  - Schizophrenia [Not Recovered/Not Resolved]
  - Movement disorder [Unknown]
  - Extrapyramidal disorder [Recovered/Resolved]
